FAERS Safety Report 23245511 (Version 1)
Quarter: 2023Q4

REPORT INFORMATION
  Report Type: Spontaneous
  Country: FR (occurrence: None)
  Receive Date: 20231130
  Receipt Date: 20231130
  Transmission Date: 20240110
  Serious: Yes (Hospitalization)
  Sender: FDA-Public Use
  Company Number: 2023A265818

PATIENT
  Sex: Female
  Weight: 80 kg

DRUGS (3)
  1. ESOMEPRAZOLE [Suspect]
     Active Substance: ESOMEPRAZOLE
     Indication: Abdominal pain upper
     Dosage: 1 PER DAY
     Route: 048
     Dates: start: 20230713, end: 20230718
  2. LEVOTHYROXINE [Concomitant]
     Active Substance: LEVOTHYROXINE
  3. XARELTO [Concomitant]
     Active Substance: RIVAROXABAN

REACTIONS (5)
  - Sense of oppression [Recovered/Resolved]
  - Palpitations [Recovered/Resolved]
  - Paraesthesia [Recovered/Resolved]
  - Vertigo [Recovered/Resolved]
  - Nausea [Recovered/Resolved]

NARRATIVE: CASE EVENT DATE: 20230717
